FAERS Safety Report 9851507 (Version 1)
Quarter: 2014Q1

REPORT INFORMATION
  Report Type: Spontaneous
  Country: US (occurrence: US)
  Receive Date: 20140129
  Receipt Date: 20140129
  Transmission Date: 20141002
  Serious: Yes (Other)
  Sender: FDA-Public Use
  Company Number: US-BIOGENIDEC-2014BI005490

PATIENT
  Sex: Male

DRUGS (5)
  1. TECFIDERA [Suspect]
     Indication: MULTIPLE SCLEROSIS
     Route: 048
     Dates: start: 20130730
  2. ASPIRIN LOW DOSE [Concomitant]
  3. ATORVASTATIN CALCIUM [Concomitant]
  4. TEMAZEPAM [Concomitant]
  5. VITAMIN D [Concomitant]

REACTIONS (2)
  - Weight decreased [Unknown]
  - Helicobacter infection [Unknown]
